FAERS Safety Report 8709420 (Version 3)
Quarter: 2012Q4

REPORT INFORMATION
  Report Type: 
  Country: FR (occurrence: FR)
  Receive Date: 20120806
  Receipt Date: 20120903
  Transmission Date: 20130627
  Serious: Yes (Death)
  Sender: FDA-Public Use
  Company Number: FR-BRISTOL-MYERS SQUIBB COMPANY-16806127

PATIENT
  Sex: Male

DRUGS (3)
  1. REYATAZ [Suspect]
     Route: 064
     Dates: start: 20110124
  2. NORVIR [Suspect]
     Dosage: 1 film coated tablet daily
     Route: 064
     Dates: start: 20110124
  3. TRUVADA [Suspect]
     Route: 064
     Dates: start: 20110124

REACTIONS (7)
  - Eagle Barrett syndrome [Fatal]
  - Anal atresia [Fatal]
  - Dysmorphism [Fatal]
  - Intestinal malrotation [Fatal]
  - Persistent cloaca [Fatal]
  - Renal aplasia [Fatal]
  - Bladder dilatation [Fatal]
